FAERS Safety Report 7886756-4 (Version None)
Quarter: 2011Q4

REPORT INFORMATION
  Report Type: 
  Country: None (occurrence: None)
  Receive Date: 20111102
  Receipt Date: 20111020
  Transmission Date: 20120403
  Serious: Yes (Hospitalization, Other)
  Sender: FDA-Public Use
  Company Number: US-ELI_LILLY_AND_COMPANY-US201104000401

PATIENT
  Sex: Female

DRUGS (19)
  1. LIPITOR [Concomitant]
  2. SINGULAIR [Concomitant]
  3. ASPIRIN [Concomitant]
  4. FOLIC ACID [Concomitant]
  5. NEURONTIN [Concomitant]
  6. SPIRIVA [Concomitant]
  7. CALCIUM [Concomitant]
  8. VITAMIN B-12 [Concomitant]
  9. JANUMET [Concomitant]
  10. FORTEO [Suspect]
     Indication: OSTEOPOROSIS
     Dosage: 20 UG, QD
     Route: 065
     Dates: start: 20110319
  11. ADVAIR DISKUS 100/50 [Concomitant]
  12. ALBUTEROL [Concomitant]
  13. RANEXA [Concomitant]
  14. LOTREL [Concomitant]
  15. PLAVIX [Concomitant]
  16. VITAMIN D [Concomitant]
  17. COREG [Concomitant]
  18. ACIPHEX [Concomitant]
  19. FORTEO [Suspect]
     Dosage: 20 UG, QD

REACTIONS (12)
  - MALAISE [None]
  - FOOT FRACTURE [None]
  - INJECTION SITE REACTION [None]
  - LIGAMENT SPRAIN [None]
  - MYOCARDIAL INFARCTION [None]
  - PNEUMONIA [None]
  - INJECTION SITE ERYTHEMA [None]
  - DRUG DOSE OMISSION [None]
  - DYSGEUSIA [None]
  - INFLUENZA [None]
  - BONE PAIN [None]
  - PAIN [None]
